FAERS Safety Report 4542699-5 (Version None)
Quarter: 2004Q4

REPORT INFORMATION
  Report Type: 
  Country: None (occurrence: None)
  Receive Date: 20041223
  Receipt Date: 20040930
  Transmission Date: 20050328
  Serious: No
  Sender: FDA-Public Use
  Company Number: US-JNJFOC-20041000868

PATIENT
  Age: 34 Year
  Sex: Female
  Weight: 61.2356 kg

DRUGS (2)
  1. ORTHO EVRA [Suspect]
     Indication: CONTRACEPTION
     Dosage: 1 DOSE (S), 3 IN 4 WEEK, TRANSDERMAL
     Route: 062
     Dates: start: 20040401
  2. BUTALBITAL, ACETAMINOPHEN, CAFFEINE (BUTALBITAL) [Concomitant]

REACTIONS (3)
  - HEADACHE [None]
  - METRORRHAGIA [None]
  - WITHDRAWAL BLEED [None]
